FAERS Safety Report 17523764 (Version 3)
Quarter: 2020Q2

REPORT INFORMATION
  Report Type: Spontaneous
  Country: NL (occurrence: NL)
  Receive Date: 20200311
  Receipt Date: 20200406
  Transmission Date: 20200713
  Serious: Yes (Death, Hospitalization, Other)
  Sender: FDA-Public Use
  Company Number: NL-CELLTRION INC.-2020NL020367

PATIENT

DRUGS (2)
  1. RITUXIMAB (UNKNOWN) [Suspect]
     Active Substance: RITUXIMAB
     Indication: MANTLE CELL LYMPHOMA STAGE IV
     Dosage: 375 MG/M2 (EVERY THREE MONTHS); Q3MO
     Route: 065
  2. RITUXIMAB (UNKNOWN) [Suspect]
     Active Substance: RITUXIMAB
     Indication: IMMUNOSUPPRESSANT DRUG THERAPY

REACTIONS (16)
  - Deafness bilateral [Not Recovered/Not Resolved]
  - Pneumonia [Unknown]
  - Pleural effusion [Unknown]
  - Headache [Recovered/Resolved]
  - Pyrexia [Unknown]
  - Oedema peripheral [Unknown]
  - Death [Fatal]
  - Thrombocytopenia [Unknown]
  - Leukopenia [Unknown]
  - Deafness [Recovered/Resolved]
  - Diarrhoea [Unknown]
  - Atrial fibrillation [Unknown]
  - Respiratory failure [Unknown]
  - Encephalitis viral [Unknown]
  - Gait disturbance [Recovered/Resolved]
  - Product use in unapproved indication [Unknown]
